FAERS Safety Report 17910007 (Version 2)
Quarter: 2020Q3

REPORT INFORMATION
  Report Type: Spontaneous
  Country: US (occurrence: US)
  Receive Date: 20200617
  Receipt Date: 20200828
  Transmission Date: 20201103
  Serious: Yes (Other)
  Sender: FDA-Public Use
  Company Number: US-NAPPMUNDI-USA-2020-0152909

PATIENT
  Sex: Male

DRUGS (2)
  1. OXYCONTIN [Suspect]
     Active Substance: OXYCODONE HYDROCHLORIDE
     Indication: CENTRAL PAIN SYNDROME
     Dosage: UNK
     Route: 048
  2. OXYCODONE HYDROCHLORIDE (SIMILAR TO NDA 22?272) [Suspect]
     Active Substance: OXYCODONE HYDROCHLORIDE
     Indication: CENTRAL PAIN SYNDROME
     Route: 048

REACTIONS (5)
  - Agitation [Unknown]
  - Hypertensive crisis [Unknown]
  - Personality change [Unknown]
  - Cerebrovascular accident [Unknown]
  - Hypertension [Unknown]
